FAERS Safety Report 5385397-0 (Version None)
Quarter: 2007Q3

REPORT INFORMATION
  Report Type: 
  Country: None (occurrence: None)
  Receive Date: 20070709
  Receipt Date: 20070702
  Transmission Date: 20080115
  Serious: Yes (Life-Threatening, Hospitalization)
  Sender: FDA-Public Use
  Company Number: 2007-160205-NL

PATIENT
  Age: 21 Year
  Sex: Female

DRUGS (3)
  1. ETONOGESTREL [Suspect]
     Indication: CONTRACEPTION
     Dosage: DF
     Dates: start: 20060819
  2. LEVOTHYROXINE SODIUM [Concomitant]
  3. MEFENAMIC ACID [Concomitant]

REACTIONS (1)
  - BREAST CANCER FEMALE [None]
